FAERS Safety Report 8174536-4 (Version None)
Quarter: 2012Q1

REPORT INFORMATION
  Report Type: 
  Country: None (occurrence: None)
  Receive Date: 20120229
  Receipt Date: 20120228
  Transmission Date: 20120608
  Serious: Yes (Other)
  Sender: FDA-Public Use
  Company Number: US-PFIZER INC-2012053191

PATIENT
  Sex: Male

DRUGS (2)
  1. LIPITOR [Suspect]
     Dosage: 80 MG, UNK
  2. LIPITOR [Suspect]
     Dosage: 40 MG, UNK

REACTIONS (6)
  - IRRITABILITY [None]
  - MUSCULAR WEAKNESS [None]
  - AGGRESSION [None]
  - MYALGIA [None]
  - SCHIZOPHRENIA [None]
  - BIPOLAR DISORDER [None]
